FAERS Safety Report 18253395 (Version 5)
Quarter: 2020Q4

REPORT INFORMATION
  Report Type: Spontaneous
  Country: US (occurrence: US)
  Receive Date: 20200910
  Receipt Date: 20201105
  Transmission Date: 20210113
  Serious: Yes (Other)
  Sender: FDA-Public Use
  Company Number: US-PFIZER INC-2020349643

PATIENT
  Age: 70 Year
  Sex: Female
  Weight: 52.16 kg

DRUGS (1)
  1. CHANTIX [Suspect]
     Active Substance: VARENICLINE TARTRATE
     Indication: SMOKING CESSATION THERAPY
     Dosage: 0.5 MG, 1X/DAY
     Route: 048
     Dates: start: 20200815, end: 20200815

REACTIONS (9)
  - Gingival swelling [Recovering/Resolving]
  - Anxiety [Unknown]
  - Oral pain [Recovering/Resolving]
  - Discomfort [Unknown]
  - Feeling abnormal [Unknown]
  - Mouth swelling [Recovering/Resolving]
  - Gingival pain [Recovering/Resolving]
  - Oral mucosal blistering [Unknown]
  - Gingival discomfort [Unknown]

NARRATIVE: CASE EVENT DATE: 20200816
